FAERS Safety Report 16420501 (Version 1)
Quarter: 2019Q2

REPORT INFORMATION
  Report Type: Spontaneous
  Country: US (occurrence: US)
  Receive Date: 20190506
  Receipt Date: 20190506
  Transmission Date: 20190711
  Serious: No
  Sender: FDA-Public Use
  Company Number: None

PATIENT
  Age: 83 Year
  Sex: Male
  Weight: 77.11 kg

DRUGS (1)
  1. AMLODIPINE [Suspect]
     Active Substance: AMLODIPINE BESYLATE
     Indication: HYPERTENSION
     Dosage: ?          OTHER DOSE:7.5MG;?
     Route: 048
     Dates: start: 20160218, end: 20180711

REACTIONS (2)
  - Sinus bradycardia [None]
  - Left ventricular hypertrophy [None]

NARRATIVE: CASE EVENT DATE: 20180711
